FAERS Safety Report 7118074-6 (Version None)
Quarter: 2010Q4

REPORT INFORMATION
  Report Type: 
  Country: None (occurrence: None)
  Receive Date: 20101123
  Receipt Date: 20101111
  Transmission Date: 20110411
  Serious: Yes (Hospitalization)
  Sender: FDA-Public Use
  Company Number: US-BAYER-201024511NA

PATIENT
  Age: 25 Year
  Sex: Female

DRUGS (13)
  1. YASMIN [Suspect]
     Indication: CONTRACEPTION
     Route: 048
     Dates: start: 20060101, end: 20091101
  2. IBUPROFEN [Concomitant]
  3. DEPAKOTE [Concomitant]
     Indication: MIGRAINE
     Dates: start: 20050101, end: 20080101
  4. WELLBUTRIN [Concomitant]
     Indication: ANXIETY
     Dates: start: 20050101, end: 20080101
  5. TOPAMAX [Concomitant]
     Indication: MIGRAINE
     Dates: start: 20050101, end: 20080101
  6. ELMIRON [Concomitant]
     Indication: CYSTITIS INTERSTITIAL
     Dates: start: 20020101
  7. CELEXA [Concomitant]
  8. PRILOSEC [Concomitant]
  9. PHENERGAN [Concomitant]
  10. PERCOCET [Concomitant]
  11. GI COCKTAIL [Concomitant]
  12. PEPCID [Concomitant]
  13. NEXIUM [Concomitant]

REACTIONS (5)
  - ABDOMINAL PAIN UPPER [None]
  - BILIARY DYSKINESIA [None]
  - CHOLECYSTITIS CHRONIC [None]
  - NAUSEA [None]
  - VOMITING [None]
